FAERS Safety Report 5468085-1 (Version None)
Quarter: 2007Q3

REPORT INFORMATION
  Report Type: 
  Country: None (occurrence: None)
  Receive Date: 20070926
  Receipt Date: 20070920
  Transmission Date: 20080115
  Serious: Yes (Death, Other)
  Sender: FDA-Public Use
  Company Number: US-ASTRAZENECA-2006UW26070

PATIENT
  Age: 22964 Day
  Sex: Male
  Weight: 100 kg

DRUGS (5)
  1. SEROQUEL [Suspect]
     Indication: DEMENTIA ALZHEIMER'S TYPE
     Dosage: 200 MG - 300 MG
     Route: 048
     Dates: end: 20060616
  2. SEROQUEL [Suspect]
     Dosage: 25 MG - 200 MG
     Route: 048
  3. SEROQUEL [Suspect]
     Route: 048
  4. GEODON [Concomitant]
     Dosage: 10 MG - 60 MG
     Dates: start: 20050131, end: 20050805
  5. RISPERDAL [Concomitant]

REACTIONS (3)
  - CONVULSION [None]
  - DIABETES MELLITUS [None]
  - PNEUMONIA [None]
